FAERS Safety Report 16702331 (Version 1)
Quarter: 2019Q3

REPORT INFORMATION
  Report Type: Spontaneous
  Country: US (occurrence: US)
  Receive Date: 20190813
  Receipt Date: 20190813
  Transmission Date: 20191004
  Serious: Yes (Hospitalization)
  Sender: FDA-Public Use
  Company Number: None

PATIENT
  Age: 58 Year
  Sex: Female
  Weight: 137.25 kg

DRUGS (1)
  1. VASCEPA [Suspect]
     Active Substance: ICOSAPENT ETHYL
     Indication: BLOOD CHOLESTEROL
     Dosage: ?          QUANTITY:1 CAPSULE(S);?
     Route: 048
     Dates: start: 20190810, end: 20190810

REACTIONS (10)
  - Lymphadenopathy [None]
  - Myalgia [None]
  - Hyperhidrosis [None]
  - Throat irritation [None]
  - Vision blurred [None]
  - Transient ischaemic attack [None]
  - Oropharyngeal pain [None]
  - Dyspnoea [None]
  - Cough [None]
  - Heart rate increased [None]

NARRATIVE: CASE EVENT DATE: 20190810
